FAERS Safety Report 7840060-9 (Version None)
Quarter: 2011Q4

REPORT INFORMATION
  Report Type: 
  Country: None (occurrence: None)
  Receive Date: 20111025
  Receipt Date: 20111013
  Transmission Date: 20120403
  Serious: Yes (Other)
  Sender: FDA-Public Use
  Company Number: ES-RANBAXY-2009RR-27103

PATIENT
  Age: 48 Year
  Sex: Female

DRUGS (9)
  1. DIDANOSINE [Suspect]
     Indication: HIV INFECTION
     Dosage: UNK
     Route: 065
  2. LOPINAVIR [Suspect]
     Indication: HIV INFECTION
     Route: 065
  3. ZIDOVUDINE [Suspect]
     Indication: HIV INFECTION
     Route: 065
  4. NEVIRAPINE [Suspect]
     Indication: HIV INFECTION
  5. TENOFOVIR DISOPROXIL FUMARATE [Suspect]
     Indication: HIV INFECTION
     Route: 065
  6. SAQUINAVIR [Suspect]
     Indication: HIV INFECTION
     Route: 065
  7. STAVUDINE [Suspect]
     Indication: HIV INFECTION
     Route: 065
  8. LAMIVUDINE [Suspect]
     Indication: HIV INFECTION
     Route: 065
  9. RITONAVIR [Suspect]
     Indication: HIV INFECTION
     Route: 065

REACTIONS (1)
  - PORTAL HYPERTENSION [None]
